FAERS Safety Report 16733168 (Version 8)
Quarter: 2021Q3

REPORT INFORMATION
  Report Type: Spontaneous
  Country: US (occurrence: US)
  Receive Date: 20190823
  Receipt Date: 20210722
  Transmission Date: 20211014
  Serious: Yes (Hospitalization)
  Sender: FDA-Public Use
  Company Number: US-VIFOR (INTERNATIONAL) INC.-VIT-2019-07562

PATIENT
  Sex: Female

DRUGS (3)
  1. VELTASSA [Suspect]
     Active Substance: PATIROMER
     Indication: HYPERKALAEMIA
     Route: 048
     Dates: start: 20181201
  2. VELTASSA [Suspect]
     Active Substance: PATIROMER
     Route: 048
  3. VELTASSA [Suspect]
     Active Substance: PATIROMER
     Route: 048

REACTIONS (9)
  - Tooth infection [Unknown]
  - Vomiting [Unknown]
  - Abdominal pain [Unknown]
  - Renal failure [Unknown]
  - Hypoaesthesia [Unknown]
  - Hospitalisation [Unknown]
  - Product dose omission issue [Unknown]
  - Blood potassium increased [Unknown]
  - Diarrhoea [Not Recovered/Not Resolved]
